FAERS Safety Report 15311313 (Version 1)
Quarter: 2018Q3

REPORT INFORMATION
  Report Type: Spontaneous
  Country: FR (occurrence: FR)
  Receive Date: 20180823
  Receipt Date: 20180823
  Transmission Date: 20181010
  Serious: Yes (Life-Threatening, Hospitalization)
  Sender: FDA-Public Use
  Company Number: FR-PFIZER INC-2018337538

PATIENT
  Age: 68 Year
  Sex: Male

DRUGS (6)
  1. CARBOPLATINE HOSPIRA [Suspect]
     Active Substance: CARBOPLATIN
     Indication: METASTATIC BRONCHIAL CARCINOMA
     Dosage: 1 DF, CYCLIC
     Route: 042
     Dates: start: 20180712
  2. ALIMTA [Suspect]
     Active Substance: PEMETREXED DISODIUM
     Indication: METASTATIC BRONCHIAL CARCINOMA
     Dosage: 1 DF, CYCLIC
     Route: 042
     Dates: start: 20180712
  3. OXYCONTIN [Concomitant]
     Active Substance: OXYCODONE HYDROCHLORIDE
     Dosage: UNK
  4. TRANXENE [Concomitant]
     Active Substance: CLORAZEPATE DIPOTASSIUM
     Dosage: UNK
  5. XENETIX [Suspect]
     Active Substance: IOBITRIDOL
     Indication: SCAN WITH CONTRAST
     Dosage: 90 ML, SINGLE
     Route: 042
     Dates: start: 20180717, end: 20180717
  6. OXYNORM [Concomitant]
     Active Substance: OXYCODONE HYDROCHLORIDE
     Dosage: UNK

REACTIONS (1)
  - Acute kidney injury [Recovering/Resolving]

NARRATIVE: CASE EVENT DATE: 20180720
